FAERS Safety Report 8394026-3 (Version None)
Quarter: 2012Q2

REPORT INFORMATION
  Report Type: 
  Country: None (occurrence: None)
  Receive Date: 20120530
  Receipt Date: 20120517
  Transmission Date: 20120825
  Serious: Yes (Disabling, Other)
  Sender: FDA-Public Use
  Company Number: AU-JNJFOC-20120515682

PATIENT
  Sex: Female
  Weight: 58 kg

DRUGS (3)
  1. TOPAMAX [Suspect]
     Indication: PRODUCT USED FOR UNKNOWN INDICATION
     Route: 048
     Dates: start: 20100911, end: 20100916
  2. VERAPAMIL HYDROCHLORIDE [Concomitant]
     Route: 065
  3. TOPAMAX [Suspect]
     Route: 048
     Dates: start: 20100909, end: 20100918

REACTIONS (3)
  - MYOPIA [None]
  - BLINDNESS TRANSIENT [None]
  - GLAUCOMA [None]
